FAERS Safety Report 8791360 (Version 1)
Quarter: 2012Q4

REPORT INFORMATION
  Report Type: Spontaneous
  Country: BR (occurrence: None)
  Receive Date: 20120912
  Receipt Date: 20120912
  Transmission Date: 20130627
  Serious: Yes (Other)
  Sender: FDA-Public Use
  Company Number: FK201202575

PATIENT
  Age: 6 Year
  Sex: Female

DRUGS (3)
  1. VALPROATE [Suspect]
     Indication: EPILEPSY
  2. LAMOTRIGINE (LAMOTRIGINE) [Suspect]
     Indication: EPILEPSY
  3. NITRAZEPAM (NITRAZEPAM) [Concomitant]

REACTIONS (7)
  - Opsoclonus myoclonus [None]
  - Ataxia [None]
  - Vomiting [None]
  - Headache [None]
  - Vertigo [None]
  - Tremor [None]
  - Dizziness [None]
